FAERS Safety Report 5599984-8 (Version None)
Quarter: 2008Q1

REPORT INFORMATION
  Report Type: 
  Country: None (occurrence: None)
  Receive Date: 20080118
  Receipt Date: 20080107
  Transmission Date: 20080703
  Serious: Yes (Death, Hospitalization)
  Sender: FDA-Public Use
  Company Number: US-JNJFOC-20071105253

PATIENT
  Age: 64 Year
  Sex: Female
  Weight: 50.1 kg

DRUGS (15)
  1. DECITABINE (DECITABINE) LYOPHILIZED POWDER [Suspect]
     Indication: OVARIAN CANCER
     Dosage: 10MG/M2, IN 1 DAY, INTRAVENOUS
     Route: 042
     Dates: start: 20071029, end: 20071102
  2. TAMOXIFEN (TAMOXIFEN) UNSPECIFIED [Concomitant]
  3. DOXIL [Concomitant]
  4. AMLODIPINE (AMLODIPINE) UNSPECIFIED [Concomitant]
  5. ANAGRELIDE (ANAGRELIDE) UNSPECIFIED [Concomitant]
  6. NEXIUM (ESOMEPRAZOLE) UNSPECIFIED [Concomitant]
  7. PROZAC [Concomitant]
  8. ATIVAN (LORAZEPAM) UNSPECIFIED [Concomitant]
  9. METOPROLOL (METOPROLOL) UNSPECIFIED [Concomitant]
  10. AVELOX (MOXIFLOXACIN HYDROCHLORIDE) UNSPECIFIED [Concomitant]
  11. MAALOX (MAALOX) UNSPECIFIED [Concomitant]
  12. PHENERGAN (PROMETHAZINE HYDROCHLORIDE) UNSPECIFIED [Concomitant]
  13. AMBIEN (ZOLPIDEM TARTRATE) UNSPECIFIED [Concomitant]
  14. MORPHINE SUSTAINED RELEASE (MORPHINE) UNSPECIFIED [Concomitant]
  15. MORPHINE IMMEDIATE RELEASE (MORPHINE) UNSPECIFIED [Concomitant]

REACTIONS (6)
  - LUNG NEOPLASM [None]
  - LYMPHATIC DISORDER [None]
  - MALIGNANT NEOPLASM PROGRESSION [None]
  - METASTASES TO PERITONEUM [None]
  - PELVIC ABSCESS [None]
  - SMALL INTESTINAL OBSTRUCTION [None]
